FAERS Safety Report 23518897 (Version 1)
Quarter: 2024Q1

REPORT INFORMATION
  Report Type: Spontaneous
  Country: US (occurrence: US)
  Receive Date: 20240213
  Receipt Date: 20240213
  Transmission Date: 20240409
  Serious: No
  Sender: FDA-Public Use
  Company Number: US-PFIZER INC-202400036020

PATIENT
  Age: 71 Year
  Sex: Male

DRUGS (3)
  1. PAXLOVID [Suspect]
     Active Substance: NIRMATRELVIR\RITONAVIR
     Indication: COVID-19 treatment
     Dosage: 2X/DAY (EVERY 12-13 HOURS)
     Dates: start: 2024, end: 2024
  2. FISH OIL [Concomitant]
     Active Substance: FISH OIL
     Dosage: UNK
  3. COQ10 [CONJUGATED LINOLEIC ACID;LINUM USITATISSIMUM SEED OIL;UBIDECARE [Concomitant]
     Dosage: UNK

REACTIONS (2)
  - Therapeutic product effect incomplete [Unknown]
  - Product storage error [Unknown]

NARRATIVE: CASE EVENT DATE: 20240101
